FAERS Safety Report 4779118-X (Version None)
Quarter: 2005Q3

REPORT INFORMATION
  Report Type: 
  Country: None (occurrence: None)
  Receive Date: 20050926
  Receipt Date: 20050920
  Transmission Date: 20060218
  Serious: Yes (Hospitalization)
  Sender: FDA-Public Use
  Company Number: CA-MERCK-0509CAN00128

PATIENT
  Age: 75 Year
  Sex: Female

DRUGS (6)
  1. FOSAMAX [Suspect]
     Route: 048
     Dates: start: 20020101
  2. CALCIUM (UNSPECIFIED) [Concomitant]
     Route: 065
  3. VITAMIN D (UNSPECIFIED) [Concomitant]
     Route: 065
  4. ASPIRIN [Concomitant]
     Route: 065
  5. AMPICILLIN [Suspect]
     Route: 065
  6. CIPROFLOXACIN HYDROCHLORIDE [Suspect]
     Route: 065

REACTIONS (3)
  - ARTHRALGIA [None]
  - BONE DENSITY DECREASED [None]
  - URINARY TRACT INFECTION [None]
